FAERS Safety Report 6172359-9 (Version None)
Quarter: 2009Q2

REPORT INFORMATION
  Report Type: 
  Country: None (occurrence: None)
  Receive Date: 20090429
  Receipt Date: 20090420
  Transmission Date: 20091009
  Serious: Yes (Other)
  Sender: FDA-Public Use
  Company Number: PHHY2009BR15129

PATIENT
  Sex: Female

DRUGS (1)
  1. PARLODEL [Suspect]
     Indication: SUPPRESSED LACTATION
     Dosage: 2.5 MG, AFTER LUNCH
     Route: 048
     Dates: start: 20090418, end: 20090418

REACTIONS (16)
  - ASTHENIA [None]
  - ASTHENOPIA [None]
  - BLOOD PRESSURE DECREASED [None]
  - BREAST ENGORGEMENT [None]
  - DIZZINESS [None]
  - DRY MOUTH [None]
  - DYSGEUSIA [None]
  - EYE SWELLING [None]
  - FEELING DRUNK [None]
  - HOT FLUSH [None]
  - NASAL CONGESTION [None]
  - OCULAR HYPERAEMIA [None]
  - PAIN [None]
  - PHOTOPHOBIA [None]
  - SOMNOLENCE [None]
  - SUFFOCATION FEELING [None]
